FAERS Safety Report 26146601 (Version 2)
Quarter: 2025Q4

REPORT INFORMATION
  Report Type: Report from Study
  Country: US (occurrence: None)
  Receive Date: 20251211
  Receipt Date: 20251224
  Transmission Date: 20260118
  Serious: Yes (Other)
  Sender: UCB
  Company Number: US-UCBSA-2025078254

PATIENT
  Age: 22 Year
  Weight: 92.517 kg

DRUGS (1)
  1. FENFLURAMINE [Suspect]
     Active Substance: FENFLURAMINE
     Indication: Seizure
     Dosage: 30 MG/DAY

REACTIONS (2)
  - Mitral valve thickening [Unknown]
  - Aortic valve thickening [Unknown]
